FAERS Safety Report 25093356 (Version 1)
Quarter: 2025Q1

REPORT INFORMATION
  Report Type: Report from Study
  Country: IT (occurrence: IT)
  Receive Date: 20250319
  Receipt Date: 20250319
  Transmission Date: 20250408
  Serious: Yes (Other)
  Sender: Unknown Manufacturer
  Company Number: None

PATIENT

DRUGS (4)
  1. MEROPENEM\VABORBACTAM [Suspect]
     Active Substance: MEROPENEM\VABORBACTAM
     Indication: Acinetobacter infection
     Route: 042
     Dates: start: 20240215, end: 20240302
  2. CASPOFUNGIN [Suspect]
     Active Substance: CASPOFUNGIN
     Indication: Systemic candida
     Dosage: 70 MG ON THE FIRST DAY
     Route: 042
     Dates: start: 20240215, end: 20240215
  3. CASPOFUNGIN [Suspect]
     Active Substance: CASPOFUNGIN
     Dosage: 50 MILLIGRAM, QD
     Route: 042
     Dates: start: 20240216, end: 20240302
  4. LINEZOLID [Suspect]
     Active Substance: LINEZOLID
     Indication: Staphylococcal infection
     Dosage: 600 MILLIGRAM, Q12H
     Route: 042
     Dates: start: 20240215, end: 20240302

REACTIONS (2)
  - Dermatitis bullous [Recovered/Resolved]
  - Eosinophil count increased [Recovering/Resolving]

NARRATIVE: CASE EVENT DATE: 20240227
